FAERS Safety Report 23587362 (Version 1)
Quarter: 2024Q1

REPORT INFORMATION
  Report Type: Spontaneous
  Country: NZ (occurrence: NZ)
  Receive Date: 20240301
  Receipt Date: 20240301
  Transmission Date: 20240409
  Serious: Yes (Hospitalization)
  Sender: FDA-Public Use
  Company Number: NZ-GE HEALTHCARE-2024CSU001869

PATIENT
  Age: 34 Year
  Sex: Male
  Weight: 85 kg

DRUGS (6)
  1. OMNIPAQUE [Suspect]
     Active Substance: IOHEXOL
     Indication: Computerised tomogram heart
     Dosage: 75 ML, TOTAL
     Route: 042
     Dates: start: 20240223, end: 20240223
  2. OMNIPAQUE [Suspect]
     Active Substance: IOHEXOL
     Dosage: 5 ML, TOTAL
     Route: 042
     Dates: start: 20240223, end: 20240223
  3. METOPROLOL [Concomitant]
     Active Substance: METOPROLOL
     Indication: Heart rate
     Dosage: 50 MG
     Route: 048
     Dates: start: 20240223, end: 20240223
  4. METOPROLOL [Concomitant]
     Active Substance: METOPROLOL
     Dosage: 10 MG
     Route: 042
     Dates: start: 20240223, end: 20240223
  5. NITROGLYCERIN [Concomitant]
     Active Substance: NITROGLYCERIN
     Indication: Vasodilation procedure
     Dosage: UNK
     Dates: start: 20240223, end: 20240223
  6. COLCHICINE [Concomitant]
     Active Substance: COLCHICINE
     Indication: Gout
     Dosage: 0.5 MG
     Route: 065

REACTIONS (6)
  - Sneezing [Unknown]
  - Throat tightness [Unknown]
  - Chest discomfort [Unknown]
  - Vomiting [Unknown]
  - Nausea [Unknown]
  - Retching [Unknown]

NARRATIVE: CASE EVENT DATE: 20240223
